FAERS Safety Report 9736278 (Version 2)
Quarter: 2014Q1

REPORT INFORMATION
  Report Type: Spontaneous
  Country: CM (occurrence: CM)
  Receive Date: 20131206
  Receipt Date: 20140311
  Transmission Date: 20141002
  Serious: Yes (Death)
  Sender: FDA-Public Use
  Company Number: CM-ROCHE-1307363

PATIENT
  Age: 56 Year
  Sex: Male

DRUGS (2)
  1. PEGASYS [Suspect]
     Indication: HEPATITIS C
     Route: 058
  2. COPEGUS [Suspect]
     Indication: HEPATITIS C
     Route: 048

REACTIONS (4)
  - Encephalopathy [Fatal]
  - Hepatic failure [Fatal]
  - Anaemia [Fatal]
  - Thrombocytopenia [Fatal]
